FAERS Safety Report 4386528-1 (Version None)
Quarter: 2004Q2

REPORT INFORMATION
  Report Type: 
  Country: None (occurrence: None)
  Receive Date: 20040629
  Receipt Date: 20040618
  Transmission Date: 20050107
  Serious: Yes (Hospitalization)
  Sender: FDA-Public Use
  Company Number: 200412404FR

PATIENT
  Age: 67 Year
  Sex: Female

DRUGS (7)
  1. LASILIX FAIBLE [Suspect]
     Route: 048
  2. SPIRONOLACTONE [Suspect]
     Indication: HYPERTENSIVE CARDIOMYOPATHY
     Route: 048
     Dates: end: 20040211
  3. OGAST [Suspect]
     Route: 048
  4. PREVISCAN 20 MG [Concomitant]
     Route: 048
     Dates: end: 20040211
  5. CALCIDIA [Suspect]
     Route: 048
  6. IMOVANE [Concomitant]
     Route: 048
  7. CALCIUM 500 MG [Concomitant]
     Route: 048

REACTIONS (6)
  - BIOPSY KIDNEY ABNORMAL [None]
  - DIARRHOEA [None]
  - HYPOVOLAEMIA [None]
  - KLEBSIELLA INFECTION [None]
  - RENAL FAILURE ACUTE [None]
  - URINARY TRACT INFECTION [None]
